FAERS Safety Report 8928133 (Version 1)
Quarter: 2012Q4

REPORT INFORMATION
  Report Type: 
  Country: BR (occurrence: BR)
  Receive Date: 20121127
  Receipt Date: 20121127
  Transmission Date: 20130627
  Serious: Yes (Other)
  Sender: FDA-Public Use
  Company Number: BR-PFIZER INC-2012292408

PATIENT
  Age: 73 Year
  Sex: Female
  Weight: 75 kg

DRUGS (3)
  1. XALATAN [Suspect]
     Dosage: 1 drop each eye 1x/day
     Route: 047
     Dates: start: 20071119
  2. XALATAN [Suspect]
     Dosage: 2 drops each eye, 2 or 3x/day
     Route: 047
  3. PILOCARPINE [Concomitant]
     Dosage: 1 drop each eye once a day
     Route: 047
     Dates: start: 20071119

REACTIONS (3)
  - Blindness unilateral [Not Recovered/Not Resolved]
  - Visual acuity reduced [Not Recovered/Not Resolved]
  - Overdose [Not Recovered/Not Resolved]
